FAERS Safety Report 23426606 (Version 1)
Quarter: 2024Q1

REPORT INFORMATION
  Report Type: Spontaneous
  Country: CZ (occurrence: CZ)
  Receive Date: 20240122
  Receipt Date: 20240122
  Transmission Date: 20240410
  Serious: Yes (Hospitalization, Other)
  Sender: FDA-Public Use
  Company Number: CZ-OPELLA-2023OHG007955

PATIENT
  Age: 17 Year
  Sex: Female

DRUGS (10)
  1. AMBROXOL [Suspect]
     Active Substance: AMBROXOL
     Indication: Suicide attempt
     Dosage: UNK, DAILY DOSE: 10 TABLETS
     Route: 048
  2. DROTAVERINE HYDROCHLORIDE [Suspect]
     Active Substance: DROTAVERINE HYDROCHLORIDE
     Indication: Suicide attempt
     Dosage: UNK, DAILY DOSE: 20 TABLETS
     Route: 048
  3. IBUPROFEN [Suspect]
     Active Substance: IBUPROFEN
     Indication: Suicide attempt
     Dosage: UNK, DAILY DOSE: 100 TABLETS
     Route: 048
  4. LOPERAMIDE [Suspect]
     Active Substance: LOPERAMIDE
     Indication: Suicide attempt
     Dosage: UNK, DAILY DOSE: 8 TABLETS
     Route: 048
  5. METHYLPHENIDATE HYDROCHLORIDE [Suspect]
     Active Substance: METHYLPHENIDATE HYDROCHLORIDE
     Indication: Suicide attempt
     Dosage: UNK, DAILY DOSE: 30 TABLETS
     Route: 048
  6. METAMIZOLE SODIUM [Suspect]
     Active Substance: METAMIZOLE SODIUM
     Indication: Suicide attempt
     Dosage: UNK, DAILY DOSE: 10 TABLETS
     Route: 048
  7. METOPROLOL [Suspect]
     Active Substance: METOPROLOL
     Indication: Suicide attempt
     Dosage: UNK, DAILY DOSE: 100 TABLETS
     Route: 048
  8. NORFLOXACIN [Suspect]
     Active Substance: NORFLOXACIN
     Indication: Suicide attempt
     Dosage: UNK, DAILY DOSE: 20 TABLETS
     Route: 048
  9. PROGESTERONE [Suspect]
     Active Substance: PROGESTERONE
     Indication: Suicide attempt
     Dosage: UNK, DAILY DOSE: 30 TABLETS
     Route: 048
  10. PROPIVERINE [Suspect]
     Active Substance: PROPIVERINE
     Indication: Suicide attempt
     Dosage: UNK, DAILY DOSE: 14 TABLETS
     Route: 048

REACTIONS (6)
  - Metabolic acidosis [Recovering/Resolving]
  - Dyslalia [Recovering/Resolving]
  - Acidosis [Recovering/Resolving]
  - Bradycardia [Recovering/Resolving]
  - Confusional state [Recovering/Resolving]
  - Mydriasis [Recovering/Resolving]
